FAERS Safety Report 4310399-2 (Version None)
Quarter: 2004Q1

REPORT INFORMATION
  Report Type: 
  Country: None (occurrence: None)
  Receive Date: 20040301
  Receipt Date: 20031113
  Transmission Date: 20041129
  Serious: No
  Sender: FDA-Public Use
  Company Number: WAES 0311USA01537

PATIENT
  Sex: Male
  Weight: 90.7194 kg

DRUGS (8)
  1. ZETIA [Suspect]
     Indication: BLOOD CHOLESTEROL INCREASED
     Dosage: 10 MG/DAILY/PO
     Route: 048
     Dates: start: 20030919
  2. CATAPRES [Concomitant]
  3. FLOMAX [Concomitant]
  4. NEXIUM [Concomitant]
  5. NORVASC [Concomitant]
  6. PAXIL CR [Concomitant]
  7. WELCHOL [Concomitant]
  8. ZANTAC [Concomitant]

REACTIONS (3)
  - BLOOD CHOLESTEROL INCREASED [None]
  - BLOOD TRIGLYCERIDES INCREASED [None]
  - LOW DENSITY LIPOPROTEIN INCREASED [None]
